FAERS Safety Report 5279059-8 (Version None)
Quarter: 2007Q1

REPORT INFORMATION
  Report Type: 
  Country: None (occurrence: None)
  Receive Date: 20070328
  Receipt Date: 20060906
  Transmission Date: 20070707
  Serious: No
  Sender: FDA-Public Use
  Company Number: US-AMGEN-KDL192598

PATIENT
  Sex: Male

DRUGS (8)
  1. NEULASTA [Suspect]
     Indication: CHEMOTHERAPY
     Route: 058
     Dates: start: 20060902
  2. ZYRTEC [Concomitant]
     Route: 065
  3. FLONASE [Concomitant]
     Route: 065
  4. RITUXIMAB [Concomitant]
     Route: 065
  5. CYCLOPHOSPHAMIDE [Concomitant]
     Route: 065
  6. DOXORUBICIN HCL [Concomitant]
     Route: 065
  7. VINCRISTINE [Concomitant]
     Route: 065
  8. PREDNISONE [Concomitant]
     Route: 065

REACTIONS (1)
  - THROAT IRRITATION [None]
